FAERS Safety Report 21425698 (Version 1)
Quarter: 2022Q4

REPORT INFORMATION
  Report Type: Spontaneous
  Country: CN (occurrence: CN)
  Receive Date: 20221008
  Receipt Date: 20221008
  Transmission Date: 20230113
  Serious: Yes (Hospitalization, Other)
  Sender: FDA-Public Use
  Company Number: CN-MSNLABS-2022MSNLIT01198

PATIENT

DRUGS (3)
  1. CAPECITABINE [Suspect]
     Active Substance: CAPECITABINE
     Indication: Invasive ductal breast carcinoma
     Route: 065
     Dates: start: 20210526, end: 20210707
  2. TRASTUZUMAB [Suspect]
     Active Substance: TRASTUZUMAB
     Indication: Invasive ductal breast carcinoma
     Route: 065
     Dates: start: 20210526, end: 20210707
  3. PYROTINIB [Suspect]
     Active Substance: PYROTINIB
     Indication: Invasive ductal breast carcinoma
     Dosage: DAILY
     Route: 048
     Dates: start: 20210526, end: 20210707

REACTIONS (5)
  - Disease progression [Unknown]
  - Metastases to spleen [Unknown]
  - Diarrhoea [Unknown]
  - Palmar-plantar erythrodysaesthesia syndrome [Unknown]
  - Vomiting [Unknown]
